FAERS Safety Report 7023434-8 (Version None)
Quarter: 2010Q3

REPORT INFORMATION
  Report Type: 
  Country: None (occurrence: None)
  Receive Date: 20100930
  Receipt Date: 20100920
  Transmission Date: 20110219
  Serious: Yes (Death, Hospitalization, Other)
  Sender: FDA-Public Use
  Company Number: US-WATSON-2010-12527

PATIENT
  Sex: Male
  Weight: 66.667 kg

DRUGS (1)
  1. FENTANYL-25 [Suspect]
     Indication: PAIN
     Dosage: 2 PATCHES,  Q 72 HRS
     Route: 062
     Dates: start: 20100917, end: 20100920

REACTIONS (8)
  - CARDIAC ARREST [None]
  - DISORIENTATION [None]
  - FALL [None]
  - HALLUCINATION, VISUAL [None]
  - LOSS OF CONSCIOUSNESS [None]
  - NON-SMALL CELL LUNG CANCER [None]
  - SKIN LACERATION [None]
  - UNRESPONSIVE TO STIMULI [None]
